FAERS Safety Report 25083289 (Version 1)
Quarter: 2025Q1

REPORT INFORMATION
  Report Type: Other
  Country: IT (occurrence: IT)
  Receive Date: 20250317
  Receipt Date: 20250317
  Transmission Date: 20250409
  Serious: Yes (Hospitalization, Other)
  Sender: MACLEODS
  Company Number: None

PATIENT

DRUGS (7)
  1. OLMESARTAN MEDOXOMIL [Suspect]
     Active Substance: OLMESARTAN MEDOXOMIL
     Indication: Hypertension
     Dosage: DOSAGE: 40 MILLIGRAMS  ROUTE OF ADMINISTRATION: ORAL
     Route: 048
  2. NEBIVOLOL [Suspect]
     Active Substance: NEBIVOLOL
     Indication: Hypertension
     Dosage: DOSAGE: 5 MILLIGRM ADMINISTRATION ROUTE: ORAL
     Route: 048
  3. AMLODIPINE [Suspect]
     Active Substance: AMLODIPINE BESYLATE
     Indication: Hypertension
     Dosage: DOSAGE: 20 MILLIGRAMS, ROUTE OF ADMINISTRATION: ORAL
     Route: 048
  4. DOXAZOSIN [Suspect]
     Active Substance: DOXAZOSIN MESYLATE
     Indication: Hypertension
     Dosage: DOSAGE: 18 MILLIGRAMS ROUTE OF ADMINISTRATION: ORAL
     Route: 048
  5. NITROGLYCERIN [Suspect]
     Active Substance: NITROGLYCERIN
     Indication: Angina pectoris
     Dosage: DOSAGE: 15 MILLIGRAMS WAY OF ADMINISTRATION: TRANSDERMAL
     Route: 062
  6. SODIUM BICARBONATE [Concomitant]
     Active Substance: SODIUM BICARBONATE
     Indication: Gastric pH decreased
     Dosage: DOSAGE: 500 MILLIGRAMS ADMINISTRATION METHOD: ORAL
     Route: 048
  7. PALIPERIDONE [Concomitant]
     Active Substance: PALIPERIDONE
     Indication: Schizophrenia
     Dosage: DOSAGE: 6 MILLIGRAMS ADMINISTRATION METHOD: ORAL
     Route: 048

REACTIONS (4)
  - Blood pressure increased [Recovered/Resolved]
  - Balance disorder [Recovered/Resolved]
  - Vertigo [Recovered/Resolved]
  - Drug ineffective [Recovered/Resolved]

NARRATIVE: CASE EVENT DATE: 20230101
